FAERS Safety Report 14367372 (Version 1)
Quarter: 2018Q1

REPORT INFORMATION
  Report Type: Spontaneous
  Country: US (occurrence: US)
  Receive Date: 20180108
  Receipt Date: 20180108
  Transmission Date: 20180509
  Serious: Yes (Hospitalization, Disabling)
  Sender: FDA-Public Use
  Company Number: None

PATIENT
  Age: 75 Year
  Sex: Female
  Weight: 71.1 kg

DRUGS (6)
  1. PREDNISISONE [Concomitant]
  2. MELOTONIN [Concomitant]
  3. SERTRALINE [Concomitant]
     Active Substance: SERTRALINE HYDROCHLORIDE
  4. PRILOSEC [Concomitant]
     Active Substance: OMEPRAZOLE MAGNESIUM
  5. GABAPENTIN. [Suspect]
     Active Substance: GABAPENTIN
     Indication: RESTLESS LEGS SYNDROME
     Dosage: ?          QUANTITY:1 CAPSULE(S);?
     Route: 048
     Dates: start: 20170515, end: 20170905
  6. 1BABY ASPIRIN [Concomitant]

REACTIONS (11)
  - Speech disorder [None]
  - Sarcoidosis [None]
  - Fall [None]
  - Memory impairment [None]
  - Fatigue [None]
  - Depression [None]
  - Cough [None]
  - Dysarthria [None]
  - Paraesthesia [None]
  - Condition aggravated [None]
  - Hypertension [None]

NARRATIVE: CASE EVENT DATE: 20170515
